FAERS Safety Report 16972219 (Version 10)
Quarter: 2020Q3

REPORT INFORMATION
  Report Type: Spontaneous
  Country: US (occurrence: US)
  Receive Date: 20191029
  Receipt Date: 20200814
  Transmission Date: 20201102
  Serious: Yes (Hospitalization)
  Sender: FDA-Public Use
  Company Number: US-ACTELION-A-NJ2019-197122

PATIENT
  Age: 58 Year
  Sex: Male
  Weight: 70.3 kg

DRUGS (7)
  1. LASIX [Concomitant]
     Active Substance: FUROSEMIDE
     Dosage: UNK
  2. VELETRI [Suspect]
     Active Substance: EPOPROSTENOL
     Indication: PULMONARY ARTERIAL HYPERTENSION
     Dosage: 12.5 NG/KG, PER MIN
     Route: 042
  3. VELETRI [Suspect]
     Active Substance: EPOPROSTENOL
     Dosage: 5 NG/KG, PER MIN
     Route: 042
  4. SILDENAFIL CITRATE. [Concomitant]
     Active Substance: SILDENAFIL CITRATE
     Dosage: UNK
  5. VELETRI [Suspect]
     Active Substance: EPOPROSTENOL
     Dosage: UNK
     Route: 042
  6. VELETRI [Suspect]
     Active Substance: EPOPROSTENOL
     Dosage: 3 NG/KG, PER MIN
     Route: 042
  7. COUMADIN [Concomitant]
     Active Substance: WARFARIN SODIUM

REACTIONS (18)
  - Device occlusion [Recovered/Resolved]
  - Pain in jaw [Unknown]
  - Dizziness [Unknown]
  - Nasopharyngitis [Unknown]
  - Catheter management [Unknown]
  - Chest pain [Recovered/Resolved]
  - Weight decreased [Unknown]
  - Product leakage [Recovered/Resolved]
  - Headache [Unknown]
  - Catheter site pruritus [Unknown]
  - Diarrhoea [Unknown]
  - Stent placement [Recovered/Resolved]
  - Flushing [Unknown]
  - Dyspnoea [Not Recovered/Not Resolved]
  - Chest discomfort [Unknown]
  - Dyspepsia [Unknown]
  - Fatigue [Unknown]
  - Device connection issue [Unknown]

NARRATIVE: CASE EVENT DATE: 201911
